FAERS Safety Report 23704978 (Version 1)
Quarter: 2024Q2

REPORT INFORMATION
  Report Type: Spontaneous
  Country: AT (occurrence: AT)
  Receive Date: 20240404
  Receipt Date: 20240404
  Transmission Date: 20240716
  Serious: Yes (Death, Other)
  Sender: FDA-Public Use
  Company Number: AT-SUN PHARMACEUTICAL INDUSTRIES LTD-2023RR-386726

PATIENT
  Age: 86 Year
  Sex: Male
  Weight: 80 kg

DRUGS (10)
  1. TILDRAKIZUMAB [Suspect]
     Active Substance: TILDRAKIZUMAB
     Indication: Psoriasis
     Dosage: 100 MILLIGRAM, UNK
     Route: 042
     Dates: start: 20200707, end: 20200727
  2. CYCLOSPORINE [Concomitant]
     Active Substance: CYCLOSPORINE
     Indication: Product used for unknown indication
     Dosage: UNK
     Route: 065
  3. ACITRETIN [Concomitant]
     Active Substance: ACITRETIN
     Indication: Product used for unknown indication
     Dosage: UNK
     Route: 065
  4. METHOTREXATE SODIUM [Concomitant]
     Active Substance: METHOTREXATE SODIUM
     Indication: Psoriasis
     Dosage: 10 MILLIGRAM, UNK
     Route: 065
     Dates: end: 2020
  5. METHOTREXATE SODIUM [Concomitant]
     Active Substance: METHOTREXATE SODIUM
     Dosage: 20 MILLIGRAM, UNK
     Dates: start: 20150217
  6. OTEZLA [Concomitant]
     Active Substance: APREMILAST
     Indication: Product used for unknown indication
     Dosage: UNK
     Route: 065
  7. FOLIC ACID [Concomitant]
     Active Substance: FOLIC ACID
     Indication: Product used for unknown indication
     Dosage: UNK
     Route: 065
     Dates: start: 20140325
  8. PLAVIX [Concomitant]
     Active Substance: CLOPIDOGREL BISULFATE
     Indication: Product used for unknown indication
     Dosage: UNK
     Route: 065
     Dates: start: 20140325
  9. AUGENTROPFEN [Concomitant]
     Indication: Product used for unknown indication
     Dosage: EYE DROPS OF 20 EFFECTIVE DOSE
     Route: 065
  10. HYALURONATE SODIUM [Concomitant]
     Active Substance: HYALURONATE SODIUM
     Indication: Product used for unknown indication
     Dosage: 0.18%
     Route: 065

REACTIONS (12)
  - Myocardial infarction [Fatal]
  - Cardiac failure [Fatal]
  - Peripheral arterial occlusive disease [Fatal]
  - Peripheral arterial occlusive disease [Fatal]
  - Cerebral ischaemia [Fatal]
  - Hypertrophic cardiomyopathy [Fatal]
  - Hypertensive crisis [Fatal]
  - Sepsis [Fatal]
  - Cognitive disorder [Fatal]
  - Oedema peripheral [Fatal]
  - Gastric ulcer [Fatal]
  - Dizziness [Fatal]

NARRATIVE: CASE EVENT DATE: 20210101
